FAERS Safety Report 9365073 (Version 2)
Quarter: 2013Q3

REPORT INFORMATION
  Report Type: Spontaneous
  Country: US (occurrence: US)
  Receive Date: 20130624
  Receipt Date: 20130718
  Transmission Date: 20140515
  Serious: No
  Sender: FDA-Public Use
  Company Number: US-PFIZER INC-2013182876

PATIENT
  Sex: Female

DRUGS (6)
  1. DAYPRO [Suspect]
     Dosage: UNK
  2. PRISTIQ [Suspect]
     Dosage: UNK
  3. FLAGYL [Suspect]
     Dosage: UNK
  4. PROCARDIA [Suspect]
     Dosage: UNK
  5. METFORMIN [Suspect]
     Dosage: UNK
  6. AMBIEN CR [Suspect]
     Dosage: UNK

REACTIONS (1)
  - Drug hypersensitivity [Unknown]
